FAERS Safety Report 8414195-6 (Version None)
Quarter: 2012Q2

REPORT INFORMATION
  Report Type: 
  Country: None (occurrence: None)
  Receive Date: 20120605
  Receipt Date: 20120523
  Transmission Date: 20120825
  Serious: No
  Sender: FDA-Public Use
  Company Number: US-ASTRAZENECA-2012SE33259

PATIENT
  Age: 49 Year
  Sex: Female
  Weight: 108.9 kg

DRUGS (10)
  1. SYNTHROID [Concomitant]
     Indication: HYPOTHYROIDISM
  2. JANUMET [Concomitant]
     Indication: DIABETES MELLITUS
     Dosage: 50/1000
  3. CYMBALTA [Concomitant]
     Indication: FIBROMYALGIA
  4. NATEGLINIDE [Concomitant]
     Indication: DIABETES MELLITUS
  5. GLIMEPIRIDE [Concomitant]
     Indication: DIABETES MELLITUS
  6. SEROQUEL [Suspect]
     Indication: BIPOLAR DISORDER
     Route: 048
  7. TRAMADOL HCL [Concomitant]
     Indication: PAIN
  8. SEROQUEL [Suspect]
     Indication: MENTAL DISORDER
     Route: 048
  9. NEURONTIN [Concomitant]
     Indication: FIBROMYALGIA
  10. RESTASIS [Concomitant]
     Indication: DRY EYE

REACTIONS (5)
  - INSOMNIA [None]
  - HYPOTHYROIDISM [None]
  - FEELING ABNORMAL [None]
  - AMNESIA [None]
  - BLOOD GLUCOSE INCREASED [None]
